FAERS Safety Report 19728981 (Version 2)
Quarter: 2021Q3

REPORT INFORMATION
  Report Type: Other
  Country: MX (occurrence: MX)
  Receive Date: 20210820
  Receipt Date: 20210915
  Transmission Date: 20211014
  Serious: Yes (Other)
  Sender: FDA-Public Use
  Company Number: MX-B.BRAUN MEDICAL INC.-2115450

PATIENT
  Age: 25 Year
  Sex: Male

DRUGS (1)
  1. CEFTRIAXONE FOR INJECTION AND DEXTROSE INJECTION 0264?3153?11 (NDA 050 [Suspect]
     Active Substance: CEFTRIAXONE SODIUM
     Route: 030

REACTIONS (1)
  - Generalised bullous fixed drug eruption [None]
